FAERS Safety Report 24222420 (Version 1)
Quarter: 2024Q3

REPORT INFORMATION
  Report Type: Spontaneous
  Country: US (occurrence: US)
  Receive Date: 20240819
  Receipt Date: 20240819
  Transmission Date: 20241017
  Serious: Yes (Hospitalization)
  Sender: AUROBINDO
  Company Number: US-AUROBINDO-AUR-APL-2024-039967

PATIENT
  Sex: Female

DRUGS (4)
  1. PREDNISOLONE [Suspect]
     Active Substance: PREDNISOLONE
     Indication: Liver injury
     Dosage: 1 MILLIGRAM/KILOGRAM, DAILY
     Route: 048
  2. PREDNISOLONE [Suspect]
     Active Substance: PREDNISOLONE
     Dosage: 2 MILLIGRAM/KILOGRAM, DAILY
     Route: 048
  3. ONASEMNOGENE ABEPARVOVEC-XIOI [Suspect]
     Active Substance: ONASEMNOGENE ABEPARVOVEC-XIOI
     Indication: Spinal muscular atrophy
     Dosage: UNK (AT THE AGE OF 13 DAYS)
     Route: 065
  4. METHYLPREDNISOLONE [Concomitant]
     Active Substance: METHYLPREDNISOLONE
     Indication: Liver injury
     Dosage: 10 MILLIGRAM/KILOGRAM (FOLLOWED BY A WEAN DOWN TO 2 MG/KG DAILY)
     Route: 042

REACTIONS (1)
  - Drug ineffective [Unknown]
